FAERS Safety Report 11700373 (Version 1)
Quarter: 2015Q4

REPORT INFORMATION
  Report Type: Report from Study
  Country: KR (occurrence: KR)
  Receive Date: 20151105
  Receipt Date: 20151105
  Transmission Date: 20160304
  Serious: Yes (Hospitalization)
  Sender: FDA-Public Use
  Company Number: KR-TEVA-606150ISR

PATIENT
  Age: 72 Year
  Sex: Male
  Weight: 65 kg

DRUGS (15)
  1. SINEMET CR 50/200MG [Concomitant]
     Indication: PARKINSON^S DISEASE
     Dosage: 200MG/5
     Route: 048
     Dates: start: 20140828
  2. MADOPAR HBS [Concomitant]
     Active Substance: BENSERAZIDE HYDROCHLORIDE\LEVODOPA
     Indication: PARKINSON^S DISEASE
     Dosage: 1T/5
     Route: 048
     Dates: start: 20151013
  3. BUSPAR 10MG [Concomitant]
     Indication: ANXIETY
     Dosage: 10MG TID
     Route: 048
     Dates: start: 20150922
  4. HINECHOL 25MG [Concomitant]
     Indication: DYSURIA
     Dosage: 25MG BID
     Route: 048
     Dates: start: 20151014, end: 20151026
  5. AZILECT [Suspect]
     Active Substance: RASAGILINE MESYLATE
     Indication: PARKINSON^S DISEASE
     Dosage: 1MG QD
     Route: 048
     Dates: start: 20150728
  6. RENEXIN [Concomitant]
     Indication: POLYNEUROPATHY
     Dosage: 1T BID
     Route: 048
     Dates: start: 20110811
  7. MADOPAR 125MG [Concomitant]
     Indication: PARKINSON^S DISEASE
     Dosage: 100MG QD
     Route: 048
     Dates: start: 20151013
  8. PK MERZ INFUSION 0.4MG/ML [Concomitant]
     Indication: PARKINSON^S DISEASE
     Dosage: 1 BTL QD
     Route: 042
     Dates: start: 20151014, end: 20151015
  9. MOTILIUM-M 10MG [Concomitant]
     Indication: PROPHYLAXIS
     Dosage: 10MG TID
     Route: 048
     Dates: start: 20151013
  10. CLOZARIL 25MG [Concomitant]
     Indication: DELUSION
     Dosage: 25 QD
     Route: 048
     Dates: start: 20151015
  11. FORLAX 10G [Concomitant]
     Indication: CONSTIPATION
     Dosage: 20G QD
     Route: 048
     Dates: start: 20150313
  12. RIVOTRIL 0.5MG [Concomitant]
     Indication: DELUSION
     Dosage: 0.5MG QD
     Route: 048
     Dates: start: 20150922
  13. SOLONDO 5MG [Concomitant]
     Indication: POLYNEUROPATHY
     Dosage: 5 MG QOD (EVERY OTHER DAY)
     Route: 048
     Dates: start: 20130723
  14. M-COBAL 0.5MG [Concomitant]
     Indication: POLYNEUROPATHY
     Dosage: 0.5MG TID
     Route: 048
     Dates: start: 20140822, end: 20151012
  15. M-COBAL 0.5MG [Concomitant]
     Dosage: 500MG TID
     Route: 048
     Dates: start: 20151013

REACTIONS (1)
  - Dysuria [Recovered/Resolved]

NARRATIVE: CASE EVENT DATE: 20151014
